FAERS Safety Report 15931720 (Version 1)
Quarter: 2019Q1

REPORT INFORMATION
  Report Type: Spontaneous
  Country: US (occurrence: US)
  Receive Date: 20190116
  Receipt Date: 20190116
  Transmission Date: 20190417
  Serious: No
  Sender: FDA-Public Use
  Company Number: None

PATIENT
  Age: 5 Year
  Sex: Female
  Weight: 18.6 kg

DRUGS (13)
  1. SMOFLIPID [Suspect]
     Active Substance: FISH OIL\MEDIUM-CHAIN TRIGLYCERIDES\OLIVE OIL\SOYBEAN OIL
     Indication: FAILURE TO THRIVE
     Route: 042
     Dates: start: 201704
  2. ZINC. [Concomitant]
     Active Substance: ZINC
  3. TRAVASCL 10% [Concomitant]
  4. SODIUM CHLORIDE. [Concomitant]
     Active Substance: SODIUM CHLORIDE
  5. COPPER [Concomitant]
     Active Substance: COPPER
  6. CALCIUM GLUCONATE. [Concomitant]
     Active Substance: CALCIUM GLUCONATE
  7. SWFI [Concomitant]
  8. SODIUM ACETATE. [Concomitant]
     Active Substance: SODIUM ACETATE
  9. MAGNESIUM SULFATE. [Concomitant]
     Active Substance: MAGNESIUM SULFATE
  10. SELENIUM [Concomitant]
     Active Substance: SELENIUM
  11. KCL [Concomitant]
     Active Substance: POTASSIUM CHLORIDE
  12. K PHOS [Concomitant]
  13. DEXTROSE. [Concomitant]
     Active Substance: DEXTROSE

REACTIONS (2)
  - Infusion related reaction [None]
  - Abdominal pain upper [None]

NARRATIVE: CASE EVENT DATE: 20181230
